FAERS Safety Report 9737272 (Version 1)
Quarter: 2013Q4

REPORT INFORMATION
  Report Type: Spontaneous
  Country: US (occurrence: US)
  Receive Date: 20131206
  Receipt Date: 20131206
  Transmission Date: 20140711
  Serious: No
  Sender: FDA-Public Use
  Company Number: US-BIOGENIDEC-2013BI089684

PATIENT
  Age: 61 Year
  Sex: Female

DRUGS (6)
  1. TECFIDERA [Suspect]
     Indication: MULTIPLE SCLEROSIS
     Route: 048
     Dates: start: 20130830, end: 201309
  2. TECFIDERA [Suspect]
     Indication: MULTIPLE SCLEROSIS
     Route: 048
     Dates: start: 201309, end: 20130910
  3. CLARITIN [Concomitant]
  4. LISINOPRIL [Concomitant]
  5. PREMPRO [Concomitant]
  6. PROPRANOLOL HCL [Concomitant]

REACTIONS (6)
  - Contusion [Recovered/Resolved]
  - Weight decreased [Recovered/Resolved]
  - Skin burning sensation [Recovered/Resolved]
  - Diarrhoea [Recovered/Resolved]
  - Nausea [Recovered/Resolved]
  - Abdominal pain upper [Recovered/Resolved]
